FAERS Safety Report 21622429 (Version 3)
Quarter: 2023Q2

REPORT INFORMATION
  Report Type: Spontaneous
  Country: CA (occurrence: CA)
  Receive Date: 20221121
  Receipt Date: 20230524
  Transmission Date: 20230722
  Serious: Yes (Hospitalization, Other)
  Sender: FDA-Public Use
  Company Number: None

PATIENT
  Age: 26 Year
  Sex: Female
  Weight: 80 kg

DRUGS (59)
  1. DIMENHYDRINATE [Suspect]
     Active Substance: DIMENHYDRINATE
     Indication: Premedication
     Dosage: 50 MG
     Route: 042
  2. DIMENHYDRINATE [Suspect]
     Active Substance: DIMENHYDRINATE
     Dosage: UNK
     Route: 048
  3. DIMENHYDRINATE [Suspect]
     Active Substance: DIMENHYDRINATE
     Dosage: UNK
     Route: 042
  4. DIPHENHYDRAMINE [Suspect]
     Active Substance: DIPHENHYDRAMINE
     Indication: Premedication
     Dosage: 50 MG
     Route: 048
  5. OMEPRAZOLE [Suspect]
     Active Substance: OMEPRAZOLE
     Indication: Product used for unknown indication
     Dosage: 20 MG, QD
     Route: 048
  6. OMEPRAZOLE [Suspect]
     Active Substance: OMEPRAZOLE
     Dosage: UNK
     Route: 048
  7. ESOMEPRAZOLE [Suspect]
     Active Substance: ESOMEPRAZOLE
     Indication: Product used for unknown indication
     Dosage: 1 DOSAGE FORM, QD
     Route: 048
  8. OXAZEPAM [Suspect]
     Active Substance: OXAZEPAM
     Indication: Product used for unknown indication
     Dosage: 30 MG
     Route: 048
  9. AZATHIOPRINE [Suspect]
     Active Substance: AZATHIOPRINE
     Indication: Product used for unknown indication
     Dosage: 75 MG, QD
     Route: 048
  10. AZATHIOPRINE [Suspect]
     Active Substance: AZATHIOPRINE
     Dosage: 100 MG, QD
     Route: 048
  11. AZATHIOPRINE [Suspect]
     Active Substance: AZATHIOPRINE
     Dosage: 100 MG, QD
     Route: 048
  12. AZATHIOPRINE [Suspect]
     Active Substance: AZATHIOPRINE
     Dosage: 75 MG, QD
     Route: 048
  13. AZATHIOPRINE [Suspect]
     Active Substance: AZATHIOPRINE
     Dosage: 75 MG, QD
     Route: 048
  14. AZATHIOPRINE [Suspect]
     Active Substance: AZATHIOPRINE
     Dosage: 75 MG, QD
     Route: 065
  15. AZATHIOPRINE [Suspect]
     Active Substance: AZATHIOPRINE
     Dosage: 75 MG, QD
     Route: 048
  16. AZATHIOPRINE [Suspect]
     Active Substance: AZATHIOPRINE
     Dosage: 75 MG, QD
     Route: 048
  17. AZATHIOPRINE [Suspect]
     Active Substance: AZATHIOPRINE
     Dosage: 75 MG, QD
     Route: 048
  18. AZATHIOPRINE [Suspect]
     Active Substance: AZATHIOPRINE
     Dosage: 75 MG, QD
     Route: 048
  19. AZATHIOPRINE [Suspect]
     Active Substance: AZATHIOPRINE
     Dosage: 100 MG, QD
     Route: 048
  20. AZATHIOPRINE [Suspect]
     Active Substance: AZATHIOPRINE
     Dosage: 100 MG, QD
     Route: 048
  21. AZATHIOPRINE [Suspect]
     Active Substance: AZATHIOPRINE
     Dosage: 100 MG, QD
     Route: 048
  22. AZATHIOPRINE [Suspect]
     Active Substance: AZATHIOPRINE
     Dosage: 100 MG, QD
     Route: 048
  23. AZATHIOPRINE [Suspect]
     Active Substance: AZATHIOPRINE
     Dosage: 100 MG, QD
     Route: 048
  24. AZATHIOPRINE [Suspect]
     Active Substance: AZATHIOPRINE
     Dosage: 100 MG, QD
     Route: 048
  25. ACETAMINOPHEN [Suspect]
     Active Substance: ACETAMINOPHEN
     Indication: Headache
     Dosage: UNK
     Route: 048
  26. ACETAMINOPHEN [Suspect]
     Active Substance: ACETAMINOPHEN
     Dosage: UNK
     Route: 048
  27. ATENOLOL [Suspect]
     Active Substance: ATENOLOL
     Indication: Product used for unknown indication
     Dosage: UNK
     Route: 048
  28. BETAMETHASONE VALERATE [Suspect]
     Active Substance: BETAMETHASONE VALERATE
     Indication: Product used for unknown indication
     Dosage: UNK
     Route: 061
  29. CITALOPRAM HYDROBROMIDE [Suspect]
     Active Substance: CITALOPRAM HYDROBROMIDE
     Indication: Depression
     Dosage: UNK
     Route: 065
  30. DICLECTIN [Suspect]
     Active Substance: DOXYLAMINE SUCCINATE\PYRIDOXINE HYDROCHLORIDE
     Indication: Nausea
     Dosage: UNK
     Route: 065
  31. DICLECTIN [Suspect]
     Active Substance: DOXYLAMINE SUCCINATE\PYRIDOXINE HYDROCHLORIDE
     Dosage: UNK
     Route: 065
  32. FLOVENT [Suspect]
     Active Substance: FLUTICASONE PROPIONATE
     Indication: Product used for unknown indication
     Dosage: 125 MG, BID
     Route: 048
  33. FLOVENT [Suspect]
     Active Substance: FLUTICASONE PROPIONATE
     Dosage: 250 MG, BID
     Route: 048
  34. FLOVENT [Suspect]
     Active Substance: FLUTICASONE PROPIONATE
     Dosage: 125 MG, QD (24 DOSES)
     Route: 048
  35. FLOVENT [Suspect]
     Active Substance: FLUTICASONE PROPIONATE
     Dosage: 250 MG, QW, 2 DOSE WEEKLY
     Route: 048
  36. FLOVENT [Suspect]
     Active Substance: FLUTICASONE PROPIONATE
     Dosage: 250 MG, BID
     Route: 048
  37. FLOVENT [Suspect]
     Active Substance: FLUTICASONE PROPIONATE
     Dosage: 125 MG, BID
     Route: 048
  38. FLOVENT [Suspect]
     Active Substance: FLUTICASONE PROPIONATE
     Dosage: 125 MG, QD (1 EVERY 1 DAYS)
     Route: 048
  39. FLOVENT [Suspect]
     Active Substance: FLUTICASONE PROPIONATE
     Dosage: 125 MG, QD (1 EVERY 1 DAYS)
     Route: 048
  40. FLOVENT [Suspect]
     Active Substance: FLUTICASONE PROPIONATE
     Dosage: UNK
     Route: 048
  41. PREDNISONE [Suspect]
     Active Substance: PREDNISONE
     Indication: Haemoglobin decreased
     Dosage: 20 MG, QD
     Route: 048
  42. PREDNISONE [Suspect]
     Active Substance: PREDNISONE
     Dosage: UNK
     Route: 048
  43. REMICADE [Suspect]
     Active Substance: INFLIXIMAB
     Indication: Chronic disease
     Dosage: 300 MG
     Route: 042
  44. REMICADE [Suspect]
     Active Substance: INFLIXIMAB
     Indication: Crohn^s disease
     Dosage: 300 MG, 1 DOSE 6 WEEKS
     Route: 042
  45. REMICADE [Suspect]
     Active Substance: INFLIXIMAB
     Dosage: UNK
     Route: 042
  46. REMICADE [Suspect]
     Active Substance: INFLIXIMAB
     Dosage: UNK
     Route: 042
  47. REMICADE [Suspect]
     Active Substance: INFLIXIMAB
     Dosage: 300 MG
     Route: 042
  48. REMICADE [Suspect]
     Active Substance: INFLIXIMAB
     Dosage: 300 MG
     Route: 042
  49. REMICADE [Suspect]
     Active Substance: INFLIXIMAB
     Dosage: 300 MG
     Route: 042
  50. ALBUTEROL [Suspect]
     Active Substance: ALBUTEROL
     Indication: Product used for unknown indication
     Dosage: 300 MG, TID
     Route: 065
  51. ALBUTEROL [Suspect]
     Active Substance: ALBUTEROL
     Dosage: 100 MG, QD (1 EVERY 1 DAYS)
     Route: 065
  52. TORADOL [Suspect]
     Active Substance: KETOROLAC TROMETHAMINE
     Indication: Pain
     Dosage: UNK
     Route: 048
  53. TYLENOL [Suspect]
     Active Substance: ACETAMINOPHEN
     Indication: Headache
     Dosage: UNK
     Route: 048
  54. TYLENOL [Suspect]
     Active Substance: ACETAMINOPHEN
     Dosage: UNK
     Route: 048
  55. ZOPICLONE [Suspect]
     Active Substance: ZOPICLONE
     Indication: Product used for unknown indication
     Dosage: 10 MG
     Route: 048
  56. DOXYLAMINE SUCCINATE [Suspect]
     Active Substance: DOXYLAMINE SUCCINATE
     Indication: Nausea
     Dosage: UNK
     Route: 065
  57. ESOMEPRAZOLE MAGNESIUM [Suspect]
     Active Substance: ESOMEPRAZOLE MAGNESIUM
     Indication: Product used for unknown indication
     Dosage: UNK
     Route: 048
  58. ESOMEPRAZOLE MAGNESIUM [Suspect]
     Active Substance: ESOMEPRAZOLE MAGNESIUM
     Dosage: UNK
     Route: 048
  59. ALBUTEROL SULFATE [Suspect]
     Active Substance: ALBUTEROL SULFATE
     Indication: Product used for unknown indication
     Dosage: 100 MG, TID
     Route: 065

REACTIONS (9)
  - Abdominal pain [Recovered/Resolved]
  - Concussion [Recovered/Resolved]
  - Dehydration [Recovered/Resolved]
  - Rectal haemorrhage [Recovered/Resolved]
  - Depression [Recovered/Resolved]
  - Haemoglobin decreased [Recovered/Resolved]
  - Nausea [Recovered/Resolved]
  - Diarrhoea [Recovered/Resolved]
  - Maternal exposure during pregnancy [Unknown]
